FAERS Safety Report 6232340-8 (Version None)
Quarter: 2009Q2

REPORT INFORMATION
  Report Type: 
  Country: None (occurrence: None)
  Receive Date: 20090615
  Receipt Date: 20090615
  Transmission Date: 20091009
  Serious: Yes (Other)
  Sender: FDA-Public Use
  Company Number: None

PATIENT
  Age: 57 Year
  Sex: Female
  Weight: 85.2762 kg

DRUGS (1)
  1. SEROQUEL [Suspect]
     Indication: DEPRESSION
     Dosage: 1 PILL AT NIGHT 047
     Dates: start: 20090127, end: 20090415

REACTIONS (3)
  - FLUID INTAKE REDUCED [None]
  - HYPOPHAGIA [None]
  - TONGUE BLISTERING [None]
